FAERS Safety Report 5573107-3 (Version None)
Quarter: 2007Q4

REPORT INFORMATION
  Report Type: 
  Country: None (occurrence: None)
  Receive Date: 20071220
  Receipt Date: 20071220
  Transmission Date: 20080405
  Serious: Yes (Death, Life-Threatening, Hospitalization)
  Sender: FDA-Public Use
  Company Number: None

PATIENT
  Age: 77 Year
  Sex: Female
  Weight: 71.6 kg

DRUGS (10)
  1. BLEOMYCIN [Suspect]
     Indication: HODGKIN'S DISEASE
     Dosage: 17 UNITS Q 2 WKS X 7 DOSES IV
     Route: 042
     Dates: start: 20070402, end: 20070701
  2. ATIVAN [Concomitant]
  3. EMEND [Concomitant]
  4. DECADRON [Concomitant]
  5. ALOXI [Concomitant]
  6. ADRIAMYCIN PFS [Concomitant]
  7. BLEOMYCIN [Concomitant]
  8. VELBAN [Concomitant]
  9. DTIC-DOME [Concomitant]
  10. NEULASTA [Concomitant]

REACTIONS (3)
  - DRUG TOXICITY [None]
  - HYPOXIA [None]
  - NO THERAPEUTIC RESPONSE [None]
